FAERS Safety Report 13581065 (Version 1)
Quarter: 2017Q2

REPORT INFORMATION
  Report Type: Spontaneous
  Country: US (occurrence: US)
  Receive Date: 20170525
  Receipt Date: 20170525
  Transmission Date: 20170830
  Serious: No
  Sender: FDA-Public Use
  Company Number: US-PFIZER INC-2017226969

PATIENT
  Age: 80 Year
  Sex: Female
  Weight: 54 kg

DRUGS (1)
  1. PRISTIQ EXTENDED-RELEASE [Suspect]
     Active Substance: DESVENLAFAXINE SUCCINATE
     Indication: DEPRESSION
     Dosage: 50MG TABLET CUT IN HALF, SINGLE
     Dates: start: 20170517

REACTIONS (3)
  - Drug prescribing error [Unknown]
  - Pain [Unknown]
  - Abdominal pain upper [Not Recovered/Not Resolved]

NARRATIVE: CASE EVENT DATE: 201705
